FAERS Safety Report 19783417 (Version 1)
Quarter: 2021Q3

REPORT INFORMATION
  Report Type: Spontaneous
  Country: US (occurrence: US)
  Receive Date: 20210903
  Receipt Date: 20210903
  Transmission Date: 20211014
  Serious: No
  Sender: FDA-Public Use
  Company Number: US-TEVA-2021-US-1941395

PATIENT
  Age: 62 Year
  Sex: Male

DRUGS (1)
  1. TESTOSTERONE. [Suspect]
     Active Substance: TESTOSTERONE
     Route: 065

REACTIONS (2)
  - Headache [Unknown]
  - Product residue present [Unknown]

NARRATIVE: CASE EVENT DATE: 20210804
